FAERS Safety Report 5492412-2 (Version None)
Quarter: 2007Q4

REPORT INFORMATION
  Report Type: 
  Country: None (occurrence: None)
  Receive Date: 20071015
  Receipt Date: 20070731
  Transmission Date: 20080405
  Serious: No
  Sender: FDA-Public Use
  Company Number: 2007SP002702

PATIENT
  Age: 25 Year
  Sex: Male
  Weight: 102.0593 kg

DRUGS (2)
  1. LUNESTA [Suspect]
     Indication: CIRCADIAN RHYTHM SLEEP DISORDER
     Dosage: 3 MG; ORAL, 3 MG; ORAL
     Route: 048
     Dates: start: 20070725, end: 20070726
  2. LUNESTA [Suspect]
     Indication: CIRCADIAN RHYTHM SLEEP DISORDER
     Dosage: 3 MG; ORAL, 3 MG; ORAL
     Route: 048
     Dates: start: 20070731

REACTIONS (2)
  - DRUG INEFFECTIVE [None]
  - INSOMNIA [None]
